FAERS Safety Report 19575841 (Version 1)
Quarter: 2021Q3

REPORT INFORMATION
  Report Type: Spontaneous
  Country: US (occurrence: US)
  Receive Date: 20210717
  Receipt Date: 20210717
  Transmission Date: 20211014
  Serious: Yes (Other)
  Sender: FDA-Public Use
  Company Number: None

PATIENT
  Age: 44 Year
  Sex: Female
  Weight: 99 kg

DRUGS (5)
  1. DUPIXENT [Suspect]
     Active Substance: DUPILUMAB
     Indication: NASAL POLYPS
     Dosage: ?          QUANTITY:1 INJECTION(S);OTHER FREQUENCY:EVERY TWO WEEKS;?
     Route: 030
     Dates: start: 20201115, end: 20210704
  2. SYMBORT INHALATOR [Concomitant]
  3. PRENATAL SOFTGELS [Concomitant]
  4. DUPIXENT [Suspect]
     Active Substance: DUPILUMAB
     Indication: ASTHMA
     Dosage: ?          QUANTITY:1 INJECTION(S);OTHER FREQUENCY:EVERY TWO WEEKS;?
     Route: 030
     Dates: start: 20201115, end: 20210704
  5. CALCIUM [Concomitant]
     Active Substance: CALCIUM

REACTIONS (2)
  - Arthralgia [None]
  - Pain in extremity [None]

NARRATIVE: CASE EVENT DATE: 20210716
